FAERS Safety Report 21550923 (Version 4)
Quarter: 2023Q2

REPORT INFORMATION
  Report Type: Spontaneous
  Country: US (occurrence: US)
  Receive Date: 20221103
  Receipt Date: 20230420
  Transmission Date: 20230722
  Serious: No
  Sender: FDA-Public Use
  Company Number: US-KARYOPHARM-2022KPT001315

PATIENT

DRUGS (16)
  1. XPOVIO [Suspect]
     Active Substance: SELINEXOR
     Indication: Plasma cell myeloma
     Dosage: 40 MG, WEEKLY 3/4
     Route: 048
     Dates: start: 20221026
  2. ACYCLOVIR [Concomitant]
     Active Substance: ACYCLOVIR
  3. ALLOPURINOL [Concomitant]
     Active Substance: ALLOPURINOL
  4. ATORVASTATIN [Concomitant]
     Active Substance: ATORVASTATIN
  5. CALCITONIN [Concomitant]
     Active Substance: CALCITONIN
  6. DEXAMETHASONE [Concomitant]
     Active Substance: DEXAMETHASONE
  7. DIVALPROEX SODIUM [Concomitant]
     Active Substance: DIVALPROEX SODIUM
  8. LEVETIRACETAM [Concomitant]
     Active Substance: LEVETIRACETAM
  9. FLUCONAZOLE [Concomitant]
     Active Substance: FLUCONAZOLE
  10. ONDANSETRON [Concomitant]
     Active Substance: ONDANSETRON
  11. PROCHLORPERAZINE [Concomitant]
     Active Substance: PROCHLORPERAZINE
  12. SPIRONOLACTONE [Concomitant]
     Active Substance: SPIRONOLACTONE
  13. VIMPAT [Concomitant]
     Active Substance: LACOSAMIDE
  14. KYPROLIS [Concomitant]
     Active Substance: CARFILZOMIB
  15. LEVOFLOXACIN [Concomitant]
     Active Substance: LEVOFLOXACIN
  16. OSELTAMIVIR [Concomitant]
     Active Substance: OSELTAMIVIR

REACTIONS (8)
  - White blood cell count decreased [Unknown]
  - Malaise [Unknown]
  - Cough [Unknown]
  - Diarrhoea [Not Recovered/Not Resolved]
  - Haemoglobin decreased [Unknown]
  - Platelet count decreased [Unknown]
  - Vomiting [Not Recovered/Not Resolved]
  - Nausea [Not Recovered/Not Resolved]

NARRATIVE: CASE EVENT DATE: 20220101
